FAERS Safety Report 7700414-8 (Version None)
Quarter: 2011Q3

REPORT INFORMATION
  Report Type: 
  Country: None (occurrence: None)
  Receive Date: 20110822
  Receipt Date: 20110808
  Transmission Date: 20111222
  Serious: Yes (Other)
  Sender: FDA-Public Use
  Company Number: CN-ELI_LILLY_AND_COMPANY-CN201108003188

PATIENT
  Age: 56 Year
  Sex: Male

DRUGS (2)
  1. GEMZAR [Suspect]
     Indication: LUNG NEOPLASM MALIGNANT
     Dosage: 1.6 G, DAY 1,8 EVERY 3 WEEKS
     Route: 042
     Dates: start: 20110727
  2. CISPLATIN [Concomitant]
     Indication: LUNG NEOPLASM MALIGNANT
     Dosage: 40 MG, DAY 1-3 EVERY 3 WEEKS
     Route: 058
     Dates: start: 20110727

REACTIONS (2)
  - PARANEOPLASTIC SYNDROME [None]
  - BONE MARROW FAILURE [None]
